FAERS Safety Report 24416152 (Version 1)
Quarter: 2024Q4

REPORT INFORMATION
  Report Type: Spontaneous
  Country: US (occurrence: None)
  Receive Date: 20241008
  Receipt Date: 20241008
  Transmission Date: 20250114
  Serious: Yes (Hospitalization)
  Sender: Public
  Company Number: None

PATIENT
  Age: 66 Year
  Sex: Male

DRUGS (4)
  1. PROPOFOL [Suspect]
     Active Substance: PROPOFOL
     Indication: Cardiac operation
     Dates: start: 20240605, end: 20240605
  2. MIDAZOLAM HYDROCHLORIDE [Suspect]
     Active Substance: MIDAZOLAM HYDROCHLORIDE
     Indication: Cardiac operation
     Dates: start: 20240605, end: 20240605
  3. FENTANYL [Suspect]
     Active Substance: FENTANYL
  4. PRECEDEX [Suspect]
     Active Substance: DEXMEDETOMIDINE HYDROCHLORIDE

REACTIONS (4)
  - Cardiac arrest [None]
  - Encephalopathy [None]
  - Agitation [None]
  - Infusion related reaction [None]

NARRATIVE: CASE EVENT DATE: 20240605
